FAERS Safety Report 6568542-0 (Version None)
Quarter: 2010Q1

REPORT INFORMATION
  Report Type: 
  Country: None (occurrence: None)
  Receive Date: 20100203
  Receipt Date: 20100127
  Transmission Date: 20100710
  Serious: Yes (Hospitalization)
  Sender: FDA-Public Use
  Company Number: JP-EISAI INC.-E0800-00034-SPO-JP

PATIENT
  Sex: Female

DRUGS (16)
  1. SALAGEN [Suspect]
     Route: 048
     Dates: start: 20090701, end: 20090708
  2. ZOLOFT [Suspect]
     Indication: DEPRESSION
     Route: 048
     Dates: start: 20090612, end: 20090616
  3. ZOLOFT [Suspect]
     Route: 048
     Dates: start: 20090617, end: 20090623
  4. ZOLOFT [Suspect]
     Route: 048
     Dates: start: 20090624, end: 20090707
  5. ZOLOFT [Suspect]
     Route: 048
     Dates: start: 20090708, end: 20090712
  6. ZOLOFT [Suspect]
     Route: 048
     Dates: start: 20090713, end: 20090728
  7. ZOLOFT [Suspect]
     Route: 048
     Dates: start: 20090729, end: 20090804
  8. ZOLOFT [Suspect]
     Route: 048
     Dates: start: 20090805, end: 20090810
  9. SALIGREN [Concomitant]
     Route: 048
     Dates: start: 20090612, end: 20090617
  10. SALIGREN [Concomitant]
     Route: 048
     Dates: start: 20090618, end: 20090701
  11. LEXOTAN [Concomitant]
     Indication: DEPRESSION
     Route: 048
  12. MYSLEE [Concomitant]
     Indication: DEPRESSION
     Route: 048
  13. ROHYPNOL [Concomitant]
     Indication: DEPRESSION
     Route: 048
     Dates: start: 20090608
  14. SEROQUEL [Concomitant]
     Indication: DEPRESSION
     Route: 048
     Dates: start: 20090610
  15. MUCOSTA [Concomitant]
     Indication: GASTRITIS
     Route: 048
     Dates: start: 20090624
  16. MAGNESIUM OXIDE [Concomitant]
     Indication: CONSTIPATION
     Route: 048

REACTIONS (1)
  - AKATHISIA [None]
